FAERS Safety Report 6019266-X (Version None)
Quarter: 2008Q4

REPORT INFORMATION
  Report Type: 
  Country: None (occurrence: None)
  Receive Date: 20081219
  Receipt Date: 20080527
  Transmission Date: 20090506
  Serious: Yes (Hospitalization)
  Sender: FDA-Public Use
  Company Number: US200805005729

PATIENT
  Sex: Male

DRUGS (1)
  1. HUMULIN 70/30 [Suspect]

REACTIONS (1)
  - BLOOD GLUCOSE DECREASED [None]
